FAERS Safety Report 19794641 (Version 1)
Quarter: 2021Q3

REPORT INFORMATION
  Report Type: Spontaneous
  Country: JP (occurrence: JP)
  Receive Date: 20210906
  Receipt Date: 20210906
  Transmission Date: 20211014
  Serious: Yes (Hospitalization)
  Sender: FDA-Public Use
  Company Number: JP-DSJP-DSJ-2021-128131

PATIENT
  Age: 70 Year
  Sex: Male
  Weight: 51 kg

DRUGS (14)
  1. ENHERTU [Suspect]
     Active Substance: FAM-TRASTUZUMAB DERUXTECAN-NXKI
     Indication: GASTRIC CANCER
     Dosage: 369.28 MG
     Route: 041
     Dates: start: 20210325, end: 20210325
  2. ENHERTU [Suspect]
     Active Substance: FAM-TRASTUZUMAB DERUXTECAN-NXKI
     Dosage: 289.98 MG
     Route: 041
     Dates: start: 20210506, end: 20210506
  3. ENHERTU [Suspect]
     Active Substance: FAM-TRASTUZUMAB DERUXTECAN-NXKI
     Dosage: 289.98 MG
     Route: 041
     Dates: start: 20210708, end: 20210708
  4. ENHERTU [Suspect]
     Active Substance: FAM-TRASTUZUMAB DERUXTECAN-NXKI
     Dosage: 289.98 MG
     Route: 041
     Dates: start: 20210527, end: 20210527
  5. ENHERTU [Suspect]
     Active Substance: FAM-TRASTUZUMAB DERUXTECAN-NXKI
     Dosage: 289.98 MG
     Route: 041
     Dates: start: 20210729, end: 20210729
  6. FUROSEMIDE. [Concomitant]
     Active Substance: FUROSEMIDE
     Dosage: 40 MG, QD
     Route: 048
     Dates: start: 20200116
  7. ENSURE H [Concomitant]
     Active Substance: CARBOHYDRATES\FATTY ACIDS\MINERALS\PROTEIN\VITAMINS
     Dosage: 1 DF
     Route: 048
     Dates: start: 20210708, end: 20210819
  8. ENHERTU [Suspect]
     Active Substance: FAM-TRASTUZUMAB DERUXTECAN-NXKI
     Dosage: 289.98 MG
     Route: 041
     Dates: start: 20210617, end: 20210617
  9. URSO [Concomitant]
     Active Substance: URSODIOL
     Dosage: 50 MG, TID
     Route: 048
     Dates: start: 20210708
  10. MIYA?BM [Concomitant]
     Active Substance: CLOSTRIDIUM BUTYRICUM SPORES STRAIN M-55
     Dosage: 1 DF, TID
     Route: 048
     Dates: start: 20191121
  11. TAKECAB [Concomitant]
     Active Substance: VONOPRAZAN FUMARATE
     Dosage: 20 MG, QD
     Route: 048
     Dates: start: 20210329
  12. SODIUM CHLORIDE. [Concomitant]
     Active Substance: SODIUM CHLORIDE
     Dosage: 3 G, TID
     Route: 048
     Dates: start: 20210729, end: 20210819
  13. ENHERTU [Suspect]
     Active Substance: FAM-TRASTUZUMAB DERUXTECAN-NXKI
     Dosage: 289.98 MG
     Route: 041
     Dates: start: 20210415, end: 20210415
  14. SPIRONOLACTONE. [Concomitant]
     Active Substance: SPIRONOLACTONE
     Dosage: 25 MG, BID
     Route: 048
     Dates: start: 20200409

REACTIONS (4)
  - Anaemia [Recovered/Resolved]
  - Blood bilirubin increased [Not Recovered/Not Resolved]
  - Neutrophil count decreased [Recovered/Resolved]
  - Hyponatraemia [Recovered/Resolved]

NARRATIVE: CASE EVENT DATE: 20210408
